FAERS Safety Report 5533876-5 (Version None)
Quarter: 2007Q4

REPORT INFORMATION
  Report Type: 
  Country: None (occurrence: None)
  Receive Date: 20071129
  Receipt Date: 20071115
  Transmission Date: 20080405
  Serious: Yes (Life-Threatening, Hospitalization, Other)
  Sender: FDA-Public Use
  Company Number: VER_00088_2007

PATIENT
  Sex: Female

DRUGS (1)
  1. TWINJECT 0.3 [Suspect]
     Indication: ANAPHYLACTIC REACTION
     Dosage: (0.3 MG INTRAMUSCULAR
     Route: 030

REACTIONS (2)
  - DEVICE FAILURE [None]
  - UNDERDOSE [None]
